FAERS Safety Report 4540610-4 (Version None)
Quarter: 2004Q4

REPORT INFORMATION
  Report Type: 
  Country: None (occurrence: None)
  Receive Date: 20041223
  Receipt Date: 20040928
  Transmission Date: 20050328
  Serious: No
  Sender: FDA-Public Use
  Company Number: US-JNJFOC-20040910149

PATIENT
  Age: 36 Year
  Sex: Female
  Weight: 85.7298 kg

DRUGS (5)
  1. ORTHO EVRA [Suspect]
     Indication: MENSTRUATION IRREGULAR
     Dosage: 1 DOSE(S), 3 IN 4 WEEK, TRANSDERMAL
     Route: 062
     Dates: start: 20040801
  2. EFFEXOR XR [Concomitant]
  3. STRATTERA (ALL OTHER THERAPEUTIC PRODUCTS) [Concomitant]
  4. WELLBUTRIN [Concomitant]
  5. TRAZIDONE (TRAZODONE) [Concomitant]

REACTIONS (2)
  - ALOPECIA [None]
  - METRORRHAGIA [None]
